FAERS Safety Report 5133329-2 (Version None)
Quarter: 2006Q4

REPORT INFORMATION
  Report Type: 
  Country: None (occurrence: None)
  Receive Date: 20060831
  Receipt Date: 20060714
  Transmission Date: 20070319
  Serious: No
  Sender: FDA-Public Use
  Company Number: 2006-BP-06706BP

PATIENT
  Age: 75 Year
  Sex: Female
  Weight: 71 kg

DRUGS (4)
  1. SPIRIVA [Suspect]
     Indication: CHRONIC OBSTRUCTIVE PULMONARY DISEASE
     Dosage: 18 MCG (18 MCG,1 IN 1 D),IH
     Dates: start: 20050501, end: 20060601
  2. ASMANEX TWISTHALER [Concomitant]
  3. SINGULAIR [Concomitant]
  4. NASONEX [Concomitant]

REACTIONS (2)
  - EUSTACHIAN TUBE DYSFUNCTION [None]
  - HYPOACUSIS [None]
